FAERS Safety Report 6172023-6 (Version None)
Quarter: 2009Q2

REPORT INFORMATION
  Report Type: 
  Country: None (occurrence: None)
  Receive Date: 20090429
  Receipt Date: 20090420
  Transmission Date: 20091009
  Serious: Yes (Other)
  Sender: FDA-Public Use
  Company Number: JP-PFIZER INC-2009204498

PATIENT

DRUGS (2)
  1. CELECOX [Suspect]
     Indication: OSTEOARTHRITIS
     Dosage: 100 MG, 1X/DAY
     Route: 048
     Dates: start: 20090416, end: 20090416
  2. ASCOMP [Concomitant]
     Dosage: UNK
     Route: 048

REACTIONS (2)
  - EYE SWELLING [None]
  - FACE OEDEMA [None]
